FAERS Safety Report 11185580 (Version 1)
Quarter: 2015Q2

REPORT INFORMATION
  Report Type: Report from Study
  Country: AD (occurrence: AD)
  Receive Date: 20150612
  Receipt Date: 20150612
  Transmission Date: 20150821
  Serious: Yes (Other)
  Sender: FDA-Public Use
  Company Number: AD-EMD SERONO-8026635

PATIENT
  Age: 16 Year
  Sex: Male

DRUGS (3)
  1. SAIZEN [Suspect]
     Active Substance: SOMATROPIN
     Indication: PRODUCT USED FOR UNKNOWN INDICATION
     Route: 058
     Dates: start: 20131217
  2. SAIZEN [Suspect]
     Active Substance: SOMATROPIN
     Dosage: UNSPECIFIED DOSE
     Route: 058
     Dates: start: 20131217
  3. EBASTINE [Concomitant]
     Active Substance: EBASTINE
     Indication: PRODUCT USED FOR UNKNOWN INDICATION
     Route: 048
     Dates: start: 201504

REACTIONS (2)
  - Insulin resistance [Unknown]
  - Arthropathy [Unknown]

NARRATIVE: CASE EVENT DATE: 201411
